FAERS Safety Report 7988676-3 (Version None)
Quarter: 2011Q4

REPORT INFORMATION
  Report Type: 
  Country: None (occurrence: None)
  Receive Date: 20111218
  Receipt Date: 20111129
  Transmission Date: 20120403
  Serious: No
  Sender: FDA-Public Use
  Company Number: US-ROXANE LABORATORIES, INC.-2011-RO-01717RO

PATIENT
  Sex: Male

DRUGS (4)
  1. ALLEGRA [Suspect]
     Indication: URTICARIA
     Dosage: 180 MG
     Route: 048
     Dates: start: 20111008
  2. PERCOCET [Suspect]
     Indication: PAIN
     Dates: start: 20111001, end: 20111001
  3. HYTRIN [Concomitant]
     Indication: PROSTATOMEGALY
  4. METHADONE HCL [Suspect]
     Indication: BACK PAIN
     Dosage: 30 MG

REACTIONS (5)
  - THERAPEUTIC RESPONSE DECREASED [None]
  - SOMNOLENCE [None]
  - CONDITION AGGRAVATED [None]
  - PRURITUS [None]
  - URTICARIA [None]
